FAERS Safety Report 8121945-5 (Version None)
Quarter: 2012Q1

REPORT INFORMATION
  Report Type: 
  Country: None (occurrence: None)
  Receive Date: 20120207
  Receipt Date: 20120207
  Transmission Date: 20120608
  Serious: Yes (Death, Hospitalization, Other)
  Sender: FDA-Public Use
  Company Number: None

PATIENT
  Age: 72 Year
  Sex: Female

DRUGS (7)
  1. ASPIRIN [Concomitant]
  2. ATIVAN [Concomitant]
  3. REVLIMID [Suspect]
     Indication: MYELODYSPLASTIC SYNDROME
     Dosage: 10MG QOD X 21D ORALLY
     Route: 048
     Dates: start: 20101101, end: 20110301
  4. CALCIUM [Concomitant]
  5. MULTI-VITAMINS [Concomitant]
  6. MEGACE [Concomitant]
  7. BENEFIBER [Concomitant]

REACTIONS (2)
  - HOSPICE CARE [None]
  - DISEASE PROGRESSION [None]
